FAERS Safety Report 9789724 (Version 2)
Quarter: 2014Q1

REPORT INFORMATION
  Report Type: Spontaneous
  Country: US (occurrence: US)
  Receive Date: 20131231
  Receipt Date: 20140203
  Transmission Date: 20141002
  Serious: No
  Sender: FDA-Public Use
  Company Number: US-PFIZER INC-2013373619

PATIENT
  Age: 54 Year
  Sex: Female
  Weight: 104.31 kg

DRUGS (2)
  1. EFFEXOR XR [Suspect]
     Dosage: UNK
  2. ZOLOFT [Suspect]
     Dosage: UNK

REACTIONS (6)
  - Amnesia [Unknown]
  - Injury [Unknown]
  - Anxiety [Unknown]
  - Stress [Unknown]
  - Psychiatric symptom [Unknown]
  - Nervous system disorder [Unknown]
